FAERS Safety Report 8240068-8 (Version None)
Quarter: 2012Q1

REPORT INFORMATION
  Report Type: 
  Country: None (occurrence: None)
  Receive Date: 20120327
  Receipt Date: 20120327
  Transmission Date: 20120608
  Serious: No
  Sender: FDA-Public Use
  Company Number: None

PATIENT
  Age: 57 Year
  Sex: Male
  Weight: 68.0396 kg

DRUGS (1)
  1. TACROLIMUS [Suspect]
     Dosage: 1 MG 3QD AM 2QD PO
     Route: 048
     Dates: start: 20120221

REACTIONS (2)
  - IMMUNOSUPPRESSANT DRUG LEVEL INCREASED [None]
  - PRODUCT QUALITY ISSUE [None]
